FAERS Safety Report 9957267 (Version 1)
Quarter: 2014Q1

REPORT INFORMATION
  Report Type: Report from Study
  Country: US (occurrence: US)
  Receive Date: 20140304
  Receipt Date: 20140304
  Transmission Date: 20141002
  Serious: No
  Sender: FDA-Public Use
  Company Number: US-ABBVIE-13P-163-1097876-00

PATIENT
  Age: 60 Year
  Sex: Female

DRUGS (21)
  1. HUMIRA [Suspect]
     Indication: RHEUMATOID ARTHRITIS
     Dates: start: 20110829, end: 201201
  2. ARICEPT [Concomitant]
     Indication: MENTAL IMPAIRMENT
     Dosage: 10 MG DAILY
  3. CYMBALTA [Concomitant]
     Indication: DEPRESSION
  4. ZANAFLEX [Concomitant]
     Indication: MUSCLE RELAXANT THERAPY
  5. LIDODERM PATCH [Concomitant]
     Indication: PAIN
  6. TEMAZEPAM [Concomitant]
     Indication: INSOMNIA
     Dosage: 30 MG AT HOUR OF SLEEP
  7. NAPROSYN [Concomitant]
     Indication: PRODUCT USED FOR UNKNOWN INDICATION
     Dosage: 500 MG TWICE A DAY AS NEEDED
  8. TRAMADOL [Concomitant]
     Indication: PAIN
  9. SYNTHROID [Concomitant]
     Indication: THYROID DISORDER
     Dosage: 1 MCG DAILY
  10. CRESTOR [Concomitant]
     Indication: BLOOD CHOLESTEROL
     Dosage: 20 MG DAILY
  11. METFORMIN [Concomitant]
     Indication: DIABETES MELLITUS
  12. KLONOPIN [Concomitant]
     Indication: PRODUCT USED FOR UNKNOWN INDICATION
     Dosage: 3 TIMES A DAY AS NEEDED
  13. TOPROL [Concomitant]
     Indication: BLOOD PRESSURE
     Dosage: 50 MG AT HOUR OF SLEEP
  14. COZAAR [Concomitant]
     Indication: BLOOD PRESSURE
     Dosage: 50 MG AT HOUR OF SLEEP
  15. FOLIC ACID [Concomitant]
     Indication: PRODUCT USED FOR UNKNOWN INDICATION
     Dosage: 1 MG DAILY
  16. VITAMIN B-12 [Concomitant]
     Indication: PRODUCT USED FOR UNKNOWN INDICATION
     Dosage: DAILY
  17. GLUCOSAMINE [Concomitant]
     Indication: PRODUCT USED FOR UNKNOWN INDICATION
  18. VITAMIN D3 [Concomitant]
     Indication: PRODUCT USED FOR UNKNOWN INDICATION
  19. OMEGA 3 [Concomitant]
     Indication: PRODUCT USED FOR UNKNOWN INDICATION
     Dosage: 2 TABS DAILY
  20. RANITIDINE [Concomitant]
     Indication: PRODUCT USED FOR UNKNOWN INDICATION
  21. BAYER ASPIRIN [Concomitant]
     Indication: PRODUCT USED FOR UNKNOWN INDICATION

REACTIONS (1)
  - Injection site bruising [Not Recovered/Not Resolved]
